FAERS Safety Report 7215912-3 (Version None)
Quarter: 2011Q1

REPORT INFORMATION
  Report Type: 
  Country: None (occurrence: None)
  Receive Date: 20110104
  Receipt Date: 20110104
  Transmission Date: 20110831
  Serious: Yes (Other)
  Sender: FDA-Public Use
  Company Number: None

PATIENT
  Age: 65 Year
  Sex: Female
  Weight: 73.4827 kg

DRUGS (2)
  1. FLUOXETINE HCL [Suspect]
     Indication: DEPRESSION
     Dosage: 1 CAPSULE 1/DAY PO
     Route: 048
     Dates: start: 20101025, end: 20101212
  2. FLUOXETINE HCL [Suspect]
     Indication: MIGRAINE
     Dosage: 1 CAPSULE 1/DAY PO
     Route: 048
     Dates: start: 20101025, end: 20101212

REACTIONS (5)
  - DECREASED INTEREST [None]
  - NASOPHARYNGITIS [None]
  - PRODUCT SUBSTITUTION ISSUE [None]
  - UPPER-AIRWAY COUGH SYNDROME [None]
  - FATIGUE [None]
